FAERS Safety Report 4975971-5 (Version None)
Quarter: 2006Q2

REPORT INFORMATION
  Report Type: 
  Country: None (occurrence: None)
  Receive Date: 20060418
  Receipt Date: 20060410
  Transmission Date: 20061013
  Serious: Yes (Disabling)
  Sender: FDA-Public Use
  Company Number: BR-MERCK-0604BRA00036

PATIENT

DRUGS (2)
  1. VIOXX [Suspect]
     Indication: PAIN
     Route: 048
     Dates: end: 20040514
  2. ROFECOXIB [Concomitant]
     Indication: INFECTION
     Route: 048

REACTIONS (4)
  - CARDIOVASCULAR DISORDER [None]
  - HYPERTENSION [None]
  - INFECTION [None]
  - NAUSEA [None]
